FAERS Safety Report 11444767 (Version 56)
Quarter: 2025Q3

REPORT INFORMATION
  Report Type: Spontaneous
  Country: CA (occurrence: CA)
  Receive Date: 20150902
  Receipt Date: 20250702
  Transmission Date: 20251020
  Serious: Yes (Death, Life-Threatening, Hospitalization, Disabling, Congenital Anomaly, Other)
  Sender: AMGEN
  Company Number: CA-AMGEN-CANSP2015088930

PATIENT
  Age: 40 Year
  Sex: Female
  Weight: 96 kg

DRUGS (230)
  1. AIMOVIG [Suspect]
     Active Substance: ERENUMAB-AOOE
     Indication: Migraine
     Route: 065
  2. ENBREL [Suspect]
     Active Substance: ETANERCEPT
     Indication: Rheumatoid arthritis
     Route: 065
  3. ENBREL [Suspect]
     Active Substance: ETANERCEPT
     Route: 058
  4. ENBREL [Suspect]
     Active Substance: ETANERCEPT
     Route: 058
  5. ENBREL [Suspect]
     Active Substance: ETANERCEPT
     Route: 065
  6. ENBREL [Suspect]
     Active Substance: ETANERCEPT
     Route: 058
  7. ENBREL [Suspect]
     Active Substance: ETANERCEPT
     Route: 058
  8. ENBREL [Suspect]
     Active Substance: ETANERCEPT
     Route: 058
  9. ENBREL [Suspect]
     Active Substance: ETANERCEPT
     Route: 058
  10. ADALIMUMAB [Suspect]
     Active Substance: ADALIMUMAB
     Indication: Rheumatoid arthritis
     Route: 058
  11. ADALIMUMAB [Suspect]
     Active Substance: ADALIMUMAB
     Route: 058
  12. ADALIMUMAB [Suspect]
     Active Substance: ADALIMUMAB
     Route: 058
  13. APREMILAST [Suspect]
     Active Substance: APREMILAST
     Indication: Rheumatoid arthritis
     Route: 065
  14. INFLIXIMAB [Suspect]
     Active Substance: INFLIXIMAB
     Indication: Rheumatoid arthritis
     Route: 065
  15. INFLIXIMAB [Suspect]
     Active Substance: INFLIXIMAB
     Route: 040
  16. INFLIXIMAB [Suspect]
     Active Substance: INFLIXIMAB
     Route: 040
  17. INFLIXIMAB [Suspect]
     Active Substance: INFLIXIMAB
     Route: 040
  18. INFLIXIMAB [Suspect]
     Active Substance: INFLIXIMAB
     Route: 040
  19. RITUXIMAB [Suspect]
     Active Substance: RITUXIMAB
     Indication: Rheumatoid arthritis
     Route: 065
  20. RITUXIMAB [Suspect]
     Active Substance: RITUXIMAB
     Route: 065
  21. RITUXIMAB [Suspect]
     Active Substance: RITUXIMAB
     Route: 065
  22. RITUXIMAB [Suspect]
     Active Substance: RITUXIMAB
     Route: 065
  23. RITUXIMAB [Suspect]
     Active Substance: RITUXIMAB
     Route: 016
  24. RITUXIMAB [Suspect]
     Active Substance: RITUXIMAB
     Route: 065
  25. RITUXIMAB [Suspect]
     Active Substance: RITUXIMAB
     Route: 016
  26. RITUXIMAB [Suspect]
     Active Substance: RITUXIMAB
     Route: 065
  27. RITUXIMAB [Suspect]
     Active Substance: RITUXIMAB
     Route: 065
  28. RITUXIMAB [Suspect]
     Active Substance: RITUXIMAB
     Route: 016
  29. RITUXIMAB [Suspect]
     Active Substance: RITUXIMAB
     Route: 016
  30. RITUXIMAB [Suspect]
     Active Substance: RITUXIMAB
     Route: 065
  31. RITUXIMAB [Suspect]
     Active Substance: RITUXIMAB
     Route: 065
  32. RITUXIMAB [Suspect]
     Active Substance: RITUXIMAB
     Route: 065
  33. RITUXIMAB [Suspect]
     Active Substance: RITUXIMAB
     Route: 065
  34. RITUXIMAB [Suspect]
     Active Substance: RITUXIMAB
     Route: 065
  35. RITUXIMAB [Suspect]
     Active Substance: RITUXIMAB
     Route: 040
  36. RITUXIMAB [Suspect]
     Active Substance: RITUXIMAB
     Route: 040
  37. RITUXIMAB [Suspect]
     Active Substance: RITUXIMAB
     Route: 040
  38. RITUXIMAB [Suspect]
     Active Substance: RITUXIMAB
     Dosage: 2000 MILLIGRAM, QD
     Route: 065
  39. RITUXIMAB [Suspect]
     Active Substance: RITUXIMAB
     Route: 043
  40. RITUXIMAB [Suspect]
     Active Substance: RITUXIMAB
     Route: 058
  41. RITUXIMAB [Suspect]
     Active Substance: RITUXIMAB
     Route: 058
  42. RITUXIMAB [Suspect]
     Active Substance: RITUXIMAB
     Route: 058
  43. RITUXIMAB [Suspect]
     Active Substance: RITUXIMAB
     Route: 043
  44. RITUXIMAB [Suspect]
     Active Substance: RITUXIMAB
     Route: 065
  45. RITUXIMAB [Suspect]
     Active Substance: RITUXIMAB
     Route: 065
  46. RITUXIMAB [Suspect]
     Active Substance: RITUXIMAB
     Route: 065
  47. RITUXIMAB [Suspect]
     Active Substance: RITUXIMAB
     Route: 016
  48. RITUXIMAB [Suspect]
     Active Substance: RITUXIMAB
     Route: 043
  49. RITUXIMAB [Suspect]
     Active Substance: RITUXIMAB
     Route: 040
  50. RITUXIMAB [Suspect]
     Active Substance: RITUXIMAB
     Route: 040
  51. RITUXIMAB [Suspect]
     Active Substance: RITUXIMAB
     Route: 016
  52. RITUXIMAB [Suspect]
     Active Substance: RITUXIMAB
     Route: 065
  53. CELECOXIB [Suspect]
     Active Substance: CELECOXIB
     Indication: Product used for unknown indication
     Dosage: 1 DOSAGE FORM, QD
     Route: 065
  54. CELECOXIB [Suspect]
     Active Substance: CELECOXIB
     Dosage: 2 DOSAGE FORM, QD
     Route: 065
  55. ERELZI [Suspect]
     Active Substance: ETANERCEPT-SZZS
     Indication: Rheumatoid arthritis
     Route: 065
  56. COSENTYX [Suspect]
     Active Substance: SECUKINUMAB
     Indication: Psoriatic arthropathy
     Route: 065
  57. COSENTYX [Suspect]
     Active Substance: SECUKINUMAB
     Indication: Rheumatoid arthritis
     Route: 065
  58. TRAMADOL [Suspect]
     Active Substance: TRAMADOL
     Indication: Product used for unknown indication
     Route: 065
  59. OXYCODONE [Suspect]
     Active Substance: OXYCODONE
     Indication: Product used for unknown indication
     Route: 065
  60. RAMIPRIL [Suspect]
     Active Substance: RAMIPRIL
     Indication: Rheumatoid arthritis
     Route: 065
  61. PANTOPRAZOLE [Suspect]
     Active Substance: PANTOPRAZOLE
     Indication: Product used for unknown indication
     Route: 065
  62. LEFLUNOMIDE [Suspect]
     Active Substance: LEFLUNOMIDE
     Indication: Rheumatoid arthritis
     Route: 065
  63. LEFLUNOMIDE [Suspect]
     Active Substance: LEFLUNOMIDE
     Route: 065
  64. LEFLUNOMIDE [Suspect]
     Active Substance: LEFLUNOMIDE
     Route: 048
  65. LEFLUNOMIDE [Suspect]
     Active Substance: LEFLUNOMIDE
     Route: 065
  66. LEFLUNOMIDE [Suspect]
     Active Substance: LEFLUNOMIDE
     Route: 048
  67. LEFLUNOMIDE [Suspect]
     Active Substance: LEFLUNOMIDE
     Route: 065
  68. TRIAMCINOLONE [Suspect]
     Active Substance: TRIAMCINOLONE
     Indication: Product used for unknown indication
     Route: 065
  69. DICLOFENAC SODIUM [Suspect]
     Active Substance: DICLOFENAC SODIUM
     Indication: Product used for unknown indication
     Route: 058
  70. DICLOFENAC SODIUM [Suspect]
     Active Substance: DICLOFENAC SODIUM
     Route: 065
  71. DICLOFENAC SODIUM [Suspect]
     Active Substance: DICLOFENAC SODIUM
     Route: 065
  72. ALENDRONIC ACID [Suspect]
     Active Substance: ALENDRONIC ACID
     Indication: Rheumatoid arthritis
     Route: 048
  73. ALENDRONIC ACID [Suspect]
     Active Substance: ALENDRONIC ACID
     Route: 048
  74. ALENDRONIC ACID [Suspect]
     Active Substance: ALENDRONIC ACID
     Route: 016
  75. ALENDRONIC ACID [Suspect]
     Active Substance: ALENDRONIC ACID
     Route: 065
  76. CANDESARTAN [Suspect]
     Active Substance: CANDESARTAN
     Indication: Migraine
     Route: 048
  77. DICLOFENAC DIETHYLAMINE [Suspect]
     Active Substance: DICLOFENAC DIETHYLAMINE
     Indication: Product used for unknown indication
     Route: 065
  78. TOPIRAMATE [Suspect]
     Active Substance: TOPIRAMATE
     Indication: Migraine
     Route: 065
  79. TOPIRAMATE [Suspect]
     Active Substance: TOPIRAMATE
     Dosage: 3 MG, QD
     Route: 065
  80. TOPIRAMATE [Suspect]
     Active Substance: TOPIRAMATE
     Route: 065
  81. TOPIRAMATE [Suspect]
     Active Substance: TOPIRAMATE
     Dosage: 25 MG, QD
     Route: 065
  82. SIMPONI [Suspect]
     Active Substance: GOLIMUMAB
     Indication: Rheumatoid arthritis
     Route: 065
  83. SIRUKUMAB [Suspect]
     Active Substance: SIRUKUMAB
     Indication: Product used for unknown indication
     Route: 065
  84. GOLD SODIUM THIOMALATE [Suspect]
     Active Substance: GOLD SODIUM THIOMALATE
     Indication: Product used for unknown indication
     Route: 065
  85. TRAZODONE [Suspect]
     Active Substance: TRAZODONE HYDROCHLORIDE
     Indication: Product used for unknown indication
     Route: 065
  86. TRETINOIN [Suspect]
     Active Substance: TRETINOIN
     Indication: Product used for unknown indication
     Route: 065
  87. XELJANZ [Suspect]
     Active Substance: TOFACITINIB CITRATE
     Indication: Rheumatoid arthritis
     Route: 065
  88. VITAMIN C [Suspect]
     Active Substance: ASCORBIC ACID
     Indication: Product used for unknown indication
     Route: 065
  89. PHENYLEPHRINE HYDROCHLORIDE [Suspect]
     Active Substance: PHENYLEPHRINE HYDROCHLORIDE
     Indication: Rheumatoid arthritis
     Route: 065
  90. PHENYLEPHRINE HYDROCHLORIDE [Suspect]
     Active Substance: PHENYLEPHRINE HYDROCHLORIDE
     Route: 065
  91. DOMPERIDONE MALEATE [Suspect]
     Active Substance: DOMPERIDONE MALEATE
     Indication: Product used for unknown indication
     Route: 065
  92. VITAMIN D3 [Suspect]
     Active Substance: CHOLECALCIFEROL
     Indication: Product used for unknown indication
     Route: 065
  93. PSEUDOEPHEDRINE HYDROCHLORIDE [Suspect]
     Active Substance: PSEUDOEPHEDRINE HYDROCHLORIDE
     Indication: Rheumatoid arthritis
     Route: 065
  94. ACETAMINOPHEN [Suspect]
     Active Substance: ACETAMINOPHEN
     Indication: Rheumatoid arthritis
     Route: 065
  95. ACTEMRA [Suspect]
     Active Substance: TOCILIZUMAB
     Indication: Rheumatoid arthritis
     Route: 065
  96. ACTEMRA [Suspect]
     Active Substance: TOCILIZUMAB
     Route: 040
  97. ACTEMRA [Suspect]
     Active Substance: TOCILIZUMAB
     Route: 040
  98. ACTEMRA [Suspect]
     Active Substance: TOCILIZUMAB
     Route: 065
  99. ACTEMRA [Suspect]
     Active Substance: TOCILIZUMAB
     Route: 040
  100. ACTEMRA [Suspect]
     Active Substance: TOCILIZUMAB
     Route: 058
  101. ACTEMRA [Suspect]
     Active Substance: TOCILIZUMAB
     Route: 040
  102. ACTEMRA [Suspect]
     Active Substance: TOCILIZUMAB
     Route: 040
  103. ACTEMRA [Suspect]
     Active Substance: TOCILIZUMAB
     Route: 040
  104. ACTEMRA [Suspect]
     Active Substance: TOCILIZUMAB
     Route: 058
  105. ACTEMRA [Suspect]
     Active Substance: TOCILIZUMAB
     Route: 058
  106. ACTEMRA [Suspect]
     Active Substance: TOCILIZUMAB
     Route: 040
  107. ACTEMRA [Suspect]
     Active Substance: TOCILIZUMAB
     Route: 040
  108. ACTEMRA [Suspect]
     Active Substance: TOCILIZUMAB
     Route: 058
  109. ACTEMRA [Suspect]
     Active Substance: TOCILIZUMAB
     Route: 016
  110. ACTEMRA [Suspect]
     Active Substance: TOCILIZUMAB
     Route: 040
  111. ACTEMRA [Suspect]
     Active Substance: TOCILIZUMAB
     Route: 058
  112. ACTEMRA [Suspect]
     Active Substance: TOCILIZUMAB
     Route: 065
  113. ACTEMRA [Suspect]
     Active Substance: TOCILIZUMAB
     Route: 058
  114. LEFLUNOMIDE [Suspect]
     Active Substance: LEFLUNOMIDE
     Indication: Rheumatoid arthritis
     Route: 065
  115. LEFLUNOMIDE [Suspect]
     Active Substance: LEFLUNOMIDE
     Route: 065
  116. LEFLUNOMIDE [Suspect]
     Active Substance: LEFLUNOMIDE
     Route: 048
  117. LEFLUNOMIDE [Suspect]
     Active Substance: LEFLUNOMIDE
     Route: 048
  118. LEFLUNOMIDE [Suspect]
     Active Substance: LEFLUNOMIDE
     Dosage: 5 MG, QD
     Route: 048
  119. LEFLUNOMIDE [Suspect]
     Active Substance: LEFLUNOMIDE
     Route: 048
  120. LEFLUNOMIDE [Suspect]
     Active Substance: LEFLUNOMIDE
     Route: 048
  121. LEFLUNOMIDE [Suspect]
     Active Substance: LEFLUNOMIDE
     Dosage: 20 MG, QD
     Route: 048
  122. LEFLUNOMIDE [Suspect]
     Active Substance: LEFLUNOMIDE
     Dosage: UNK UNK, QD
     Route: 048
  123. ARAVA [Suspect]
     Active Substance: LEFLUNOMIDE
     Indication: Rheumatoid arthritis
     Route: 048
  124. ARAVA [Suspect]
     Active Substance: LEFLUNOMIDE
     Route: 048
  125. ARAVA [Suspect]
     Active Substance: LEFLUNOMIDE
     Route: 065
  126. ATOMOXETINE [Suspect]
     Active Substance: ATOMOXETINE
     Indication: Migraine
     Route: 065
  127. AZATHIOPRINE SODIUM [Suspect]
     Active Substance: AZATHIOPRINE SODIUM
     Indication: Product used for unknown indication
     Route: 065
  128. CALCIUM ASCORBATE [Suspect]
     Active Substance: CALCIUM ASCORBATE
     Indication: Product used for unknown indication
     Route: 065
  129. CALCIUM ASCORBATE [Suspect]
     Active Substance: CALCIUM ASCORBATE
     Route: 065
  130. BOTULINUM TOXIN TYPE A [Suspect]
     Active Substance: BOTULINUM TOXIN TYPE A
     Indication: Product used for unknown indication
     Route: 065
  131. BUTRANS [Suspect]
     Active Substance: BUPRENORPHINE
     Indication: Product used for unknown indication
     Route: 065
  132. CALCIUM CARBONATE [Suspect]
     Active Substance: CALCIUM CARBONATE
     Indication: Product used for unknown indication
     Route: 065
  133. CALCIUM CARBONATE [Suspect]
     Active Substance: CALCIUM CARBONATE
     Route: 065
  134. CALCIUM GLUBIONATE [Suspect]
     Active Substance: CALCIUM GLUBIONATE
     Indication: Product used for unknown indication
     Route: 016
  135. CELEBREX [Suspect]
     Active Substance: CELECOXIB
     Indication: Product used for unknown indication
     Dosage: 2 DOSAGE FORM, QD
     Route: 048
  136. CERTOLIZUMAB PEGOL [Suspect]
     Active Substance: CERTOLIZUMAB PEGOL
     Indication: Rheumatoid arthritis
     Route: 065
  137. CERTOLIZUMAB PEGOL [Suspect]
     Active Substance: CERTOLIZUMAB PEGOL
     Route: 058
  138. CERTOLIZUMAB PEGOL [Suspect]
     Active Substance: CERTOLIZUMAB PEGOL
     Route: 058
  139. CERTOLIZUMAB PEGOL [Suspect]
     Active Substance: CERTOLIZUMAB PEGOL
     Route: 065
  140. CETIRIZINE HYDROCHLORIDE [Suspect]
     Active Substance: CETIRIZINE HYDROCHLORIDE
     Indication: Rheumatoid arthritis
     Route: 065
  141. CETIRIZINE HYDROCHLORIDE [Suspect]
     Active Substance: CETIRIZINE HYDROCHLORIDE
     Route: 065
  142. CETIRIZINE HYDROCHLORIDE [Suspect]
     Active Substance: CETIRIZINE HYDROCHLORIDE
     Route: 048
  143. CETIRIZINE HYDROCHLORIDE [Suspect]
     Active Substance: CETIRIZINE HYDROCHLORIDE
     Route: 048
  144. CETIRIZINE HYDROCHLORIDE [Suspect]
     Active Substance: CETIRIZINE HYDROCHLORIDE
     Route: 048
  145. CETIRIZINE HYDROCHLORIDE [Suspect]
     Active Substance: CETIRIZINE HYDROCHLORIDE
     Route: 048
  146. CETIRIZINE HYDROCHLORIDE [Suspect]
     Active Substance: CETIRIZINE HYDROCHLORIDE
     Route: 048
  147. CETIRIZINE HYDROCHLORIDE [Suspect]
     Active Substance: CETIRIZINE HYDROCHLORIDE
     Route: 048
  148. CETIRIZINE HYDROCHLORIDE [Suspect]
     Active Substance: CETIRIZINE HYDROCHLORIDE
     Route: 048
  149. CETIRIZINE HYDROCHLORIDE [Suspect]
     Active Substance: CETIRIZINE HYDROCHLORIDE
     Route: 048
  150. CETIRIZINE HYDROCHLORIDE [Suspect]
     Active Substance: CETIRIZINE HYDROCHLORIDE
     Route: 048
  151. CETIRIZINE HYDROCHLORIDE [Suspect]
     Active Substance: CETIRIZINE HYDROCHLORIDE
     Route: 048
  152. CETIRIZINE HYDROCHLORIDE [Suspect]
     Active Substance: CETIRIZINE HYDROCHLORIDE
     Route: 048
  153. CHLORHEXIDINE GLUCONATE [Suspect]
     Active Substance: CHLORHEXIDINE GLUCONATE
     Indication: Product used for unknown indication
     Route: 065
  154. CHLORHEXIDINE GLUCONATE [Suspect]
     Active Substance: CHLORHEXIDINE GLUCONATE
     Route: 065
  155. CIMZIA [Suspect]
     Active Substance: CERTOLIZUMAB PEGOL
     Indication: Rheumatoid arthritis
     Route: 058
  156. CIMZIA [Suspect]
     Active Substance: CERTOLIZUMAB PEGOL
     Route: 065
  157. CIMZIA [Suspect]
     Active Substance: CERTOLIZUMAB PEGOL
     Route: 058
  158. CIMZIA [Suspect]
     Active Substance: CERTOLIZUMAB PEGOL
     Route: 058
  159. DESOXIMETASONE [Suspect]
     Active Substance: DESOXIMETASONE
     Indication: Rheumatoid arthritis
     Route: 048
  160. FLUMETHASONE [Suspect]
     Active Substance: FLUMETHASONE
     Indication: Product used for unknown indication
     Route: 065
  161. FLUMETHASONE PIVALATE [Suspect]
     Active Substance: FLUMETHASONE PIVALATE
     Indication: Product used for unknown indication
     Route: 065
  162. FOLIC ACID [Suspect]
     Active Substance: FOLIC ACID
     Indication: Rheumatoid arthritis
     Route: 065
  163. FOLIC ACID [Suspect]
     Active Substance: FOLIC ACID
     Route: 065
  164. FOLIC ACID [Suspect]
     Active Substance: FOLIC ACID
     Route: 065
  165. FOLIC ACID [Suspect]
     Active Substance: FOLIC ACID
     Route: 065
  166. FOLIC ACID [Suspect]
     Active Substance: FOLIC ACID
     Route: 065
  167. FOLIC ACID [Suspect]
     Active Substance: FOLIC ACID
     Route: 065
  168. FOLIC ACID [Suspect]
     Active Substance: FOLIC ACID
     Route: 065
  169. FOLIC ACID [Suspect]
     Active Substance: FOLIC ACID
     Route: 065
  170. FOLIC ACID [Suspect]
     Active Substance: FOLIC ACID
     Route: 065
  171. FOLIC ACID [Suspect]
     Active Substance: FOLIC ACID
     Route: 065
  172. FOLIC ACID [Suspect]
     Active Substance: FOLIC ACID
     Route: 065
  173. FOLIC ACID [Suspect]
     Active Substance: FOLIC ACID
     Route: 065
  174. FOSAMAX [Suspect]
     Active Substance: ALENDRONATE SODIUM
     Indication: Rheumatoid arthritis
     Route: 065
  175. FOSAMAX [Suspect]
     Active Substance: ALENDRONATE SODIUM
     Route: 065
  176. FOSAMAX [Suspect]
     Active Substance: ALENDRONATE SODIUM
     Route: 065
  177. FOSAMAX [Suspect]
     Active Substance: ALENDRONATE SODIUM
     Route: 065
  178. FOSAMAX [Suspect]
     Active Substance: ALENDRONATE SODIUM
     Route: 065
  179. FOSAMAX [Suspect]
     Active Substance: ALENDRONATE SODIUM
     Route: 065
  180. FOSAMAX [Suspect]
     Active Substance: ALENDRONATE SODIUM
     Route: 065
  181. FOSAMAX [Suspect]
     Active Substance: ALENDRONATE SODIUM
     Route: 065
  182. FOSAMAX [Suspect]
     Active Substance: ALENDRONATE SODIUM
     Route: 065
  183. FOSAMAX [Suspect]
     Active Substance: ALENDRONATE SODIUM
     Route: 048
  184. FOSAMAX [Suspect]
     Active Substance: ALENDRONATE SODIUM
     Route: 058
  185. FOSAMAX [Suspect]
     Active Substance: ALENDRONATE SODIUM
     Route: 065
  186. GOLD [Suspect]
     Active Substance: GOLD
     Indication: Product used for unknown indication
     Route: 065
  187. GOLD SODIUM THIOMALATE [Suspect]
     Active Substance: GOLD SODIUM THIOMALATE
     Indication: Product used for unknown indication
     Route: 065
  188. GOLIMUMAB [Suspect]
     Active Substance: GOLIMUMAB
     Indication: Rheumatoid arthritis
     Route: 065
  189. HUMIRA [Suspect]
     Active Substance: ADALIMUMAB
     Indication: Rheumatoid arthritis
     Route: 058
  190. HUMIRA [Suspect]
     Active Substance: ADALIMUMAB
     Route: 058
  191. HUMIRA [Suspect]
     Active Substance: ADALIMUMAB
     Route: 058
  192. HUMIRA [Suspect]
     Active Substance: ADALIMUMAB
     Route: 058
  193. HUMIRA [Suspect]
     Active Substance: ADALIMUMAB
     Route: 058
  194. HYDROCORTISONE [Suspect]
     Active Substance: HYDROCORTISONE
     Indication: Product used for unknown indication
     Route: 065
  195. HYDROXYCHLOROQUINE [Suspect]
     Active Substance: HYDROXYCHLOROQUINE
     Indication: Rheumatoid arthritis
     Route: 065
  196. HYDROXYCHLOROQUINE [Suspect]
     Active Substance: HYDROXYCHLOROQUINE
     Dosage: 400 MG, QD
     Route: 058
  197. HYDROXYCHLOROQUINE [Suspect]
     Active Substance: HYDROXYCHLOROQUINE
     Route: 048
  198. HYDROXYCHLOROQUINE [Suspect]
     Active Substance: HYDROXYCHLOROQUINE
     Route: 065
  199. HYDROXYCHLOROQUINE [Suspect]
     Active Substance: HYDROXYCHLOROQUINE
     Dosage: 400 MG, QD
     Route: 065
  200. HYDROXYCHLOROQUINE [Suspect]
     Active Substance: HYDROXYCHLOROQUINE
     Route: 048
  201. HYDROXYCHLOROQUINE [Suspect]
     Active Substance: HYDROXYCHLOROQUINE
     Dosage: 400 MG, QD
     Route: 065
  202. HYDROXYCHLOROQUINE [Suspect]
     Active Substance: HYDROXYCHLOROQUINE
     Dosage: 200 MG, QD
     Route: 048
  203. HYDROXYCHLOROQUINE [Suspect]
     Active Substance: HYDROXYCHLOROQUINE
     Dosage: 400 MG, QD
     Route: 048
  204. HYDROXYCHLOROQUINE [Suspect]
     Active Substance: HYDROXYCHLOROQUINE
     Dosage: 400 MG, QD
     Route: 048
  205. HYDROXYCHLOROQUINE [Suspect]
     Active Substance: HYDROXYCHLOROQUINE
     Dosage: 400 MG, QD
     Route: 048
  206. HYDROXYCHLOROQUINE [Suspect]
     Active Substance: HYDROXYCHLOROQUINE
     Dosage: 400 MG, QD
     Route: 058
  207. HYDROXYCHLOROQUINE [Suspect]
     Active Substance: HYDROXYCHLOROQUINE
     Route: 065
  208. HYDROXYCHLOROQUINE [Suspect]
     Active Substance: HYDROXYCHLOROQUINE
     Route: 065
  209. HYDROXYCHLOROQUINE [Suspect]
     Active Substance: HYDROXYCHLOROQUINE
     Route: 048
  210. HYDROXYCHLOROQUINE [Suspect]
     Active Substance: HYDROXYCHLOROQUINE
     Route: 065
  211. HYDROXYCHLOROQUINE [Suspect]
     Active Substance: HYDROXYCHLOROQUINE
     Route: 016
  212. HYDROXYCHLOROQUINE [Suspect]
     Active Substance: HYDROXYCHLOROQUINE
     Route: 065
  213. HYDROXYCHLOROQUINE [Suspect]
     Active Substance: HYDROXYCHLOROQUINE
     Dosage: 400 MG, QD
     Route: 048
  214. HYDROXYCHLOROQUINE [Suspect]
     Active Substance: HYDROXYCHLOROQUINE
     Dosage: 400 MG, QD
     Route: 048
  215. HYDROXYCHLOROQUINE [Suspect]
     Active Substance: HYDROXYCHLOROQUINE
     Dosage: 400 MG, QD
     Route: 065
  216. HYDROXYCHLOROQUINE [Suspect]
     Active Substance: HYDROXYCHLOROQUINE
     Route: 065
  217. HYDROXYCHLOROQUINE SULFATE [Suspect]
     Active Substance: HYDROXYCHLOROQUINE SULFATE
     Indication: Rheumatoid arthritis
     Route: 065
  218. HYDROXYCHLOROQUINE SULFATE [Suspect]
     Active Substance: HYDROXYCHLOROQUINE SULFATE
     Dosage: 400 MG, QD
     Route: 048
  219. HYDROXYCHLOROQUINE SULFATE [Suspect]
     Active Substance: HYDROXYCHLOROQUINE SULFATE
     Route: 065
  220. HYDROXYCHLOROQUINE SULFATE [Suspect]
     Active Substance: HYDROXYCHLOROQUINE SULFATE
     Route: 065
  221. HYDROXYCHLOROQUINE SULFATE [Suspect]
     Active Substance: HYDROXYCHLOROQUINE SULFATE
     Route: 048
  222. HYDROXYCHLOROQUINE SULFATE [Suspect]
     Active Substance: HYDROXYCHLOROQUINE SULFATE
     Route: 065
  223. HYDROXYCHLOROQUINE SULFATE [Suspect]
     Active Substance: HYDROXYCHLOROQUINE SULFATE
     Route: 065
  224. LAMICTAL [Suspect]
     Active Substance: LAMOTRIGINE
     Indication: Product used for unknown indication
     Route: 048
  225. LAMICTAL [Suspect]
     Active Substance: LAMOTRIGINE
     Route: 048
  226. LAMICTAL [Suspect]
     Active Substance: LAMOTRIGINE
     Route: 065
  227. LAMICTAL [Suspect]
     Active Substance: LAMOTRIGINE
     Route: 048
  228. LAMICTAL [Suspect]
     Active Substance: LAMOTRIGINE
     Route: 048
  229. LAMICTAL [Suspect]
     Active Substance: LAMOTRIGINE
     Route: 048
  230. VOLTAREN [Suspect]
     Active Substance: DICLOFENAC SODIUM
     Indication: Product used for unknown indication
     Route: 065

REACTIONS (48)
  - Synovitis [Fatal]
  - Taste disorder [Fatal]
  - Vomiting [Fatal]
  - Weight increased [Fatal]
  - Wound [Fatal]
  - Drug hypersensitivity [Fatal]
  - Drug intolerance [Fatal]
  - Product use issue [Fatal]
  - Product quality issue [Fatal]
  - Intentional product use issue [Fatal]
  - Contraindicated product administered [Fatal]
  - Product use in unapproved indication [Fatal]
  - Treatment failure [Fatal]
  - Therapeutic product effect decreased [Fatal]
  - Therapeutic product effect incomplete [Fatal]
  - Drug ineffective [Fatal]
  - Wheezing [Fatal]
  - Musculoskeletal stiffness [Fatal]
  - Malaise [Fatal]
  - Insomnia [Fatal]
  - Hepatitis [Fatal]
  - Headache [Fatal]
  - Gastrointestinal disorder [Fatal]
  - Finger deformity [Fatal]
  - Fall [Fatal]
  - Dyspepsia [Fatal]
  - Condition aggravated [Fatal]
  - Coeliac disease [Fatal]
  - Adverse reaction [Fatal]
  - Abdominal distension [Fatal]
  - Grip strength decreased [Fatal]
  - Product label confusion [Fatal]
  - Alopecia [Fatal]
  - Abdominal discomfort [Fatal]
  - Anti-cyclic citrullinated peptide antibody positive [Fatal]
  - Arthralgia [Fatal]
  - Arthropathy [Fatal]
  - Blood cholesterol increased [Fatal]
  - Drug-induced liver injury [Fatal]
  - Fatigue [Fatal]
  - Exposure during pregnancy [Fatal]
  - General physical health deterioration [Fatal]
  - Glossodynia [Fatal]
  - Hepatic enzyme increased [Fatal]
  - Hand deformity [Fatal]
  - Hypersensitivity [Fatal]
  - Hypertension [Fatal]
  - Off label use [Fatal]
